FAERS Safety Report 18232661 (Version 1)
Quarter: 2020Q3

REPORT INFORMATION
  Report Type: Spontaneous
  Country: UM (occurrence: UM)
  Receive Date: 20200904
  Receipt Date: 20200904
  Transmission Date: 20201103
  Serious: Yes (Hospitalization)
  Sender: FDA-Public Use
  Company Number: None

PATIENT
  Age: 63 Year
  Sex: Male
  Weight: 80.5 kg

DRUGS (1)
  1. NIVOLUMAB 240MG [Suspect]
     Active Substance: NIVOLUMAB
     Dosage: ?          OTHER ROUTE:IV?
     Route: 042
     Dates: start: 20161005

REACTIONS (1)
  - Fall [None]

NARRATIVE: CASE EVENT DATE: 20161013
